FAERS Safety Report 6909125-X (Version None)
Quarter: 2010Q3

REPORT INFORMATION
  Report Type: 
  Country: None (occurrence: None)
  Receive Date: 20100805
  Receipt Date: 20100727
  Transmission Date: 20110219
  Serious: Yes (Hospitalization)
  Sender: FDA-Public Use
  Company Number: FR-JNJFOC-20100708871

PATIENT
  Sex: Male

DRUGS (8)
  1. HALDOL [Suspect]
     Indication: PSYCHOTIC DISORDER
     Route: 048
  2. TERCIAN [Suspect]
     Indication: PSYCHOTIC DISORDER
     Route: 065
  3. ZYPREXA [Suspect]
     Indication: PSYCHOTIC DISORDER
     Route: 048
  4. LEPTICUR [Concomitant]
     Indication: PRODUCT USED FOR UNKNOWN INDICATION
     Route: 048
  5. ZANIDIP [Concomitant]
     Indication: PRODUCT USED FOR UNKNOWN INDICATION
     Route: 065
  6. LOXEN [Concomitant]
     Indication: PRODUCT USED FOR UNKNOWN INDICATION
     Route: 065
  7. CITALOPRAM [Concomitant]
     Indication: PRODUCT USED FOR UNKNOWN INDICATION
     Route: 065
  8. FORLAX [Concomitant]
     Indication: PRODUCT USED FOR UNKNOWN INDICATION
     Route: 065

REACTIONS (2)
  - CONSTIPATION [None]
  - GASTROINTESTINAL DISORDER [None]
